FAERS Safety Report 20361636 (Version 1)
Quarter: 2022Q1

REPORT INFORMATION
  Report Type: Spontaneous
  Country: CA (occurrence: CA)
  Receive Date: 20220121
  Receipt Date: 20220121
  Transmission Date: 20220423
  Serious: Yes (Other)
  Sender: FDA-Public Use
  Company Number: CA-JNJFOC-20220134798

PATIENT
  Age: 45 Year
  Sex: Female
  Weight: 76 kg

DRUGS (7)
  1. REMICADE [Suspect]
     Active Substance: INFLIXIMAB
     Indication: Colitis ulcerative
     Route: 042
  2. AZATHIOPRINE [Concomitant]
     Active Substance: AZATHIOPRINE
  3. IBUPROFEN [Concomitant]
     Active Substance: IBUPROFEN
     Indication: Crohn^s disease
  4. METHOTREXATE [Concomitant]
     Active Substance: METHOTREXATE
  5. NAPROXEN [Concomitant]
     Active Substance: NAPROXEN
     Indication: Crohn^s disease
  6. PREDNISONE [Concomitant]
     Active Substance: PREDNISONE
  7. SULFASALAZINE [Concomitant]
     Active Substance: SULFASALAZINE

REACTIONS (7)
  - Uveitis [Unknown]
  - Heart rate increased [Unknown]
  - Arthralgia [Unknown]
  - Dizziness [Unknown]
  - Nausea [Unknown]
  - Intentional product use issue [Unknown]
  - Off label use [Unknown]
